FAERS Safety Report 4712799-5 (Version None)
Quarter: 2005Q3

REPORT INFORMATION
  Report Type: 
  Country: None (occurrence: None)
  Receive Date: 20050708
  Receipt Date: 20050708
  Transmission Date: 20060218
  Serious: Yes (Hospitalization, Other)
  Sender: FDA-Public Use
  Company Number: None

PATIENT
  Sex: Male
  Weight: 62.3 kg

DRUGS (6)
  1. FLUOROURACIL [Suspect]
     Indication: PANCREATIC CARCINOMA
     Dosage: CONTINUOUS INFUSION AT 175MG/M2 PER DAY TIMES 38 DAYS TOTAL DOSE 7600MG
     Route: 042
     Dates: start: 20050531, end: 20050625
  2. CISPLATIN [Suspect]
     Dosage: IV 30MG/M2 OVER 1 HOUR ON DAYS 1,8,15,29,36
     Route: 042
     Dates: start: 20050531, end: 20050620
  3. IFN-ALPHA2B [Suspect]
     Dosage: 3 MILLION UNITS SUB-Q ON DAYS 1,3,5 OF EACH WEEK FOR 5 1/2 WEEKS
     Route: 058
     Dates: start: 20050531, end: 20050624
  4. RADIATION [Suspect]
     Dosage: 5040 CGY TOTAL, IN 28 FRACTIONS AT 180 CGY/FRACTION DAILY, M-F, FOR 5 1/2 WEEKS
     Route: 050
     Dates: end: 20050624
  5. KYTRIL [Concomitant]
  6. PHENERGAN [Concomitant]

REACTIONS (3)
  - DIARRHOEA [None]
  - NEUTROPENIA [None]
  - PYREXIA [None]
